FAERS Safety Report 23408422 (Version 1)
Quarter: 2024Q1

REPORT INFORMATION
  Report Type: Spontaneous
  Country: AU (occurrence: AU)
  Receive Date: 20240117
  Receipt Date: 20240117
  Transmission Date: 20240410
  Serious: Yes (Other)
  Sender: FDA-Public Use
  Company Number: AU-CHEPLA-2024000547

PATIENT
  Sex: Male

DRUGS (4)
  1. CLONAZEPAM [Suspect]
     Active Substance: CLONAZEPAM
     Indication: Product used for unknown indication
  2. KEPPRA [Suspect]
     Active Substance: LEVETIRACETAM
     Indication: Product used for unknown indication
  3. TRILEPTAL [Suspect]
     Active Substance: OXCARBAZEPINE
  4. EPILIM [Suspect]
     Active Substance: VALPROATE SODIUM

REACTIONS (5)
  - Seizure [Unknown]
  - Diet failure [Unknown]
  - Feeding disorder [Unknown]
  - Multiple-drug resistance [Unknown]
  - Off label use [Unknown]
